FAERS Safety Report 14214670 (Version 1)
Quarter: 2017Q4

REPORT INFORMATION
  Report Type: Spontaneous
  Country: US (occurrence: US)
  Receive Date: 20171122
  Receipt Date: 20171122
  Transmission Date: 20180321
  Serious: Yes (Other)
  Sender: FDA-Public Use
  Company Number: US-ROCHE-1866989

PATIENT
  Age: 51 Year
  Sex: Female

DRUGS (8)
  1. HERCEPTIN [Suspect]
     Active Substance: TRASTUZUMAB
     Indication: HER-2 POSITIVE BREAST CANCER
     Route: 037
     Dates: start: 201010
  2. HERCEPTIN [Suspect]
     Active Substance: TRASTUZUMAB
     Route: 037
     Dates: start: 201101
  3. HERCEPTIN [Suspect]
     Active Substance: TRASTUZUMAB
     Route: 037
     Dates: start: 201309
  4. HERCEPTIN [Suspect]
     Active Substance: TRASTUZUMAB
     Dosage: 50-80 MG PER WEEK
     Route: 037
     Dates: start: 201107
  5. HERCEPTIN [Suspect]
     Active Substance: TRASTUZUMAB
     Dosage: ADMINISTERED BIMONTHLY FOR MAINTENANCE AT 50 % OF THE WEEKLY DOSE
     Route: 037
     Dates: start: 201305
  6. LAPATINIB [Concomitant]
     Active Substance: LAPATINIB
     Dosage: 750 MG, BID FIVE DAYS WEEKLY
     Route: 065
     Dates: start: 201305
  7. HERCEPTIN [Suspect]
     Active Substance: TRASTUZUMAB
     Route: 037
     Dates: start: 201310
  8. HERCEPTIN [Suspect]
     Active Substance: TRASTUZUMAB
     Dosage: 50-80 MG BIW, DOSE?DIVIDED TWICE PER WEEK
     Route: 037
     Dates: start: 201603

REACTIONS (1)
  - Meningitis [Unknown]

NARRATIVE: CASE EVENT DATE: 201306
